FAERS Safety Report 17728388 (Version 1)
Quarter: 2020Q2

REPORT INFORMATION
  Report Type: Report from Study
  Country: None (occurrence: US)
  Receive Date: 20200430
  Receipt Date: 20200430
  Transmission Date: 20200714
  Serious: Yes (Hospitalization)
  Sender: FDA-Public Use
  Company Number: US-ABBVIE-20K-163-3379658-00

PATIENT
  Sex: Male

DRUGS (1)
  1. HUMIRA [Suspect]
     Active Substance: ADALIMUMAB
     Indication: PSORIASIS
     Route: 058

REACTIONS (8)
  - Illusion [Not Recovered/Not Resolved]
  - Decreased activity [Not Recovered/Not Resolved]
  - Unevaluable event [Not Recovered/Not Resolved]
  - Hypophagia [Unknown]
  - Weight decreased [Not Recovered/Not Resolved]
  - Malnutrition [Recovering/Resolving]
  - Fluid intake reduced [Unknown]
  - Depression [Not Recovered/Not Resolved]
